FAERS Safety Report 7041720-2 (Version None)
Quarter: 2010Q4

REPORT INFORMATION
  Report Type: 
  Country: None (occurrence: None)
  Receive Date: 20101013
  Receipt Date: 20091215
  Transmission Date: 20110411
  Serious: No
  Sender: FDA-Public Use
  Company Number: US-ASTRAZENECA-2009SE32164

PATIENT
  Age: 52 Year
  Sex: Female

DRUGS (4)
  1. SYMBICORT [Suspect]
     Indication: ASTHMA
     Dosage: 640
     Route: 055
     Dates: start: 20070101
  2. SPIRIVA [Concomitant]
  3. VICODIN [Concomitant]
  4. ALBUTEROL [Concomitant]

REACTIONS (3)
  - DRY SKIN [None]
  - HEADACHE [None]
  - PRURITUS [None]
